FAERS Safety Report 10070260 (Version 2)
Quarter: 2014Q2

REPORT INFORMATION
  Report Type: Spontaneous
  Country: US (occurrence: US)
  Receive Date: 20140410
  Receipt Date: 20140603
  Transmission Date: 20141212
  Serious: Yes (Hospitalization)
  Sender: FDA-Public Use
  Company Number: US-BRISTOL-MYERS SQUIBB COMPANY-20593604

PATIENT
  Age: 63 Year
  Sex: Female
  Weight: 102.94 kg

DRUGS (22)
  1. BYETTA [Suspect]
     Indication: TYPE 2 DIABETES MELLITUS
     Dosage: RESTARTED AGAIN
     Route: 058
     Dates: start: 20100825
  2. MECLIZINE [Concomitant]
  3. DILANTIN [Concomitant]
  4. SEROQUEL [Concomitant]
  5. CLONIDINE HCL [Concomitant]
     Dosage: TABS
     Route: 048
  6. LEVOTHYROXINE [Concomitant]
     Route: 048
  7. ENALAPRIL [Concomitant]
  8. PANTOPRAZOLE [Concomitant]
     Route: 048
  9. CYMBALTA [Concomitant]
  10. NEURONTIN [Concomitant]
     Route: 048
  11. SYNTHROID [Concomitant]
  12. MECLIZINE [Concomitant]
  13. METFORMIN HCL [Concomitant]
  14. TRILEPTAL [Concomitant]
  15. PROTONIX [Concomitant]
  16. SEROQUEL [Concomitant]
  17. AMLODIPINE BESYLATE [Concomitant]
     Dosage: TABS
     Route: 048
  18. DULOXETINE HCL [Concomitant]
     Route: 048
  19. MECLIZINE [Concomitant]
     Indication: DIZZINESS
     Dosage: TABS
     Route: 048
  20. OXCARBAZEPINE [Concomitant]
     Route: 048
  21. PHENYTOIN SODIUM [Concomitant]
     Route: 048
  22. QUETIAPINE [Concomitant]
     Route: 048

REACTIONS (5)
  - Convulsion [Recovering/Resolving]
  - Renal failure acute [Unknown]
  - Decreased appetite [Recovering/Resolving]
  - Weight decreased [Recovering/Resolving]
  - Dizziness [Recovering/Resolving]
